FAERS Safety Report 11897234 (Version 1)
Quarter: 2016Q1

REPORT INFORMATION
  Report Type: Spontaneous
  Country: US (occurrence: US)
  Receive Date: 20160108
  Receipt Date: 20160108
  Transmission Date: 20160526
  Serious: No
  Sender: FDA-Public Use
  Company Number: US-DRREDDYS-USA/USA/15/0053224

PATIENT
  Sex: Female
  Weight: 63.5 kg

DRUGS (2)
  1. HABITROL [Suspect]
     Active Substance: NICOTINE
     Indication: SMOKING CESSATION THERAPY
     Route: 061
     Dates: start: 201510
  2. NICORETTE [Suspect]
     Active Substance: NICOTINE
     Indication: SMOKING CESSATION THERAPY
     Route: 048

REACTIONS (6)
  - Mood altered [Not Recovered/Not Resolved]
  - Weight increased [Not Recovered/Not Resolved]
  - Unevaluable event [Not Recovered/Not Resolved]
  - Overdose [Unknown]
  - Incorrect drug administration duration [Unknown]
  - Product quality issue [Unknown]
